FAERS Safety Report 8154247-1 (Version None)
Quarter: 2012Q1

REPORT INFORMATION
  Report Type: 
  Country: None (occurrence: None)
  Receive Date: 20120221
  Receipt Date: 20120215
  Transmission Date: 20120608
  Serious: Yes (Other)
  Sender: FDA-Public Use
  Company Number: US-BAYER-2012-016719

PATIENT
  Age: 12 Year
  Sex: Female
  Weight: 97.052 kg

DRUGS (7)
  1. BEYAZ [Suspect]
     Dosage: UNK
     Dates: start: 20110101, end: 20110313
  2. MUPIROCIN [Concomitant]
     Dosage: 2 %, UNK
     Route: 061
  3. CLINDAMYCIN [Concomitant]
     Indication: ACNE
     Dosage: 1 %, UNK
     Route: 061
  4. YAZ [Suspect]
  5. PERIACTIN [Concomitant]
     Dosage: 4 MG, HS
     Route: 048
  6. LEVOTHYROXINE SODIUM [Concomitant]
     Indication: HYPOTHYROIDISM
     Dosage: UNK
     Route: 048
     Dates: start: 20110127
  7. REMERON [Concomitant]
     Dosage: 30 MG, HS
     Route: 048

REACTIONS (2)
  - DEEP VEIN THROMBOSIS [None]
  - INFERIOR VENA CAVA SYNDROME [None]
